FAERS Safety Report 10237070 (Version 1)
Quarter: 2014Q1

REPORT INFORMATION
  Report Type: Spontaneous
  Country: US (occurrence: None)
  Receive Date: 20140306
  Receipt Date: 20140306
  Transmission Date: 20141002
  Serious: Yes (Hospitalization)
  Sender: FDA-Public Use
  Company Number: 163-21880-13081730

PATIENT
  Age: 80 Year
  Sex: Female

DRUGS (6)
  1. REVLIMID [Suspect]
     Indication: PLASMA CELL MYELOMA
     Route: 048
     Dates: start: 20080201
  2. ASPIRIN (ACETYLSALICYLIC ACID) [Concomitant]
  3. CARDIZEM (DILTIAZEM HYDROCHLORIDE) [Concomitant]
  4. DEXAMETHASONE (DEXAMETHASONE) [Concomitant]
  5. RYTHMOL (PROPAFENONE) [Concomitant]
  6. FLUIDS (I.V. SOLUTION) (INJECTION FOR INFUSION) [Concomitant]

REACTIONS (1)
  - Gastroenteritis viral [None]
